FAERS Safety Report 20430103 (Version 1)
Quarter: 2022Q1

REPORT INFORMATION
  Report Type: Report from Study
  Country: AU (occurrence: AU)
  Receive Date: 20220204
  Receipt Date: 20220204
  Transmission Date: 20220424
  Serious: Yes (Hospitalization)
  Sender: FDA-Public Use
  Company Number: AU-SERVIER-S20002452

PATIENT

DRUGS (33)
  1. ONCASPAR [Suspect]
     Active Substance: PEGASPARGASE
     Indication: Acute lymphocytic leukaemia
     Dosage: 1250 IU/M2, UNK
     Route: 042
     Dates: start: 20191106, end: 20191106
  2. ONCASPAR [Suspect]
     Active Substance: PEGASPARGASE
     Dosage: 1250 IU/M2, UNK
     Route: 042
     Dates: start: 20191125, end: 20191125
  3. VENETOCLAX [Suspect]
     Active Substance: VENETOCLAX
     Dosage: 200 MG, UNK
     Route: 048
     Dates: start: 20191106, end: 20191106
  4. VENETOCLAX [Suspect]
     Active Substance: VENETOCLAX
     Dosage: 400 MG, UNK
     Route: 048
     Dates: start: 20191107, end: 20191126
  5. NAVITOCLAX [Suspect]
     Active Substance: NAVITOCLAX
     Indication: Acute lymphocytic leukaemia
     Dosage: 50 MG, UNK
     Route: 048
     Dates: start: 20191108, end: 20191126
  6. DEXAMETHASONE [Suspect]
     Active Substance: DEXAMETHASONE
     Indication: Acute lymphocytic leukaemia
     Dosage: 40 MG, UNK
     Route: 048
     Dates: start: 20191106, end: 20191110
  7. DEXAMETHASONE [Suspect]
     Active Substance: DEXAMETHASONE
     Dosage: 20 MG, UNK
     Route: 048
     Dates: start: 20191121, end: 20191125
  8. VINCRISTINE [Suspect]
     Active Substance: VINCRISTINE
     Indication: Acute lymphocytic leukaemia
     Dosage: 1.5 MG/M2, UNK
     Route: 042
     Dates: start: 20191106, end: 20191106
  9. VINCRISTINE [Suspect]
     Active Substance: VINCRISTINE
     Dosage: 1.5 MG/M2, UNK
     Route: 042
     Dates: start: 20191113, end: 20191113
  10. VINCRISTINE [Suspect]
     Active Substance: VINCRISTINE
     Dosage: 1.5 MG/M2, UNK
     Route: 042
     Dates: start: 20191127, end: 20191127
  11. ALLOPURINOL [Concomitant]
     Active Substance: ALLOPURINOL
     Indication: Tumour lysis syndrome
     Dosage: 300 MG, UNK
     Route: 048
     Dates: start: 20191101, end: 20191127
  12. SERTRALINE [Concomitant]
     Active Substance: SERTRALINE HYDROCHLORIDE
     Indication: Anxiety
     Dosage: 50 MG, UNK
     Route: 048
     Dates: start: 20190508
  13. ENOXAPARIN SODIUM [Concomitant]
     Active Substance: ENOXAPARIN SODIUM
     Indication: Pulmonary embolism
     Dosage: 60 MG, UNK
     Route: 058
     Dates: start: 20190807, end: 20191126
  14. ENOXAPARIN SODIUM [Concomitant]
     Active Substance: ENOXAPARIN SODIUM
     Dosage: 40 MG, UNK
     Route: 058
     Dates: start: 20191127
  15. SULFAMETHOXAZOLE AND TRIMETHOPRIM [Concomitant]
     Active Substance: SULFAMETHOXAZOLE\TRIMETHOPRIM
     Dosage: 800 MG, UNK
     Route: 048
     Dates: start: 20190415
  16. PANTOPRAZOLE [Concomitant]
     Active Substance: PANTOPRAZOLE
     Indication: Reflux gastritis
     Dosage: 40 MG, UNK
     Route: 048
     Dates: start: 20190411, end: 20191110
  17. PANTOPRAZOLE [Concomitant]
     Active Substance: PANTOPRAZOLE
     Dosage: 80 MG, UNK
     Route: 048
     Dates: start: 20191110, end: 20191123
  18. PANTOPRAZOLE [Concomitant]
     Active Substance: PANTOPRAZOLE
     Dosage: 40 MG, UNK
     Route: 048
     Dates: start: 20191224
  19. VALACYCLOVIR HYDROCHLORIDE [Concomitant]
     Active Substance: VALACYCLOVIR HYDROCHLORIDE
     Indication: Viral infection
     Dosage: 500 MG, UNK
     Route: 048
     Dates: start: 20190415
  20. LORAZEPAM [Concomitant]
     Active Substance: LORAZEPAM
     Indication: Nausea
     Dosage: 0.5 MG, UNK
     Route: 060
     Dates: start: 201904
  21. MELATONIN [Concomitant]
     Active Substance: MELATONIN
     Indication: Sleep disorder
     Dosage: UNK
     Route: 048
     Dates: start: 20190430
  22. ACETAMINOPHEN [Concomitant]
     Active Substance: ACETAMINOPHEN
     Indication: Pain
     Dosage: 1 G, AS REQ^D
     Route: 048
     Dates: start: 201904
  23. ACETAMINOPHEN [Concomitant]
     Active Substance: ACETAMINOPHEN
     Indication: Headache
  24. PROPRANOLOL [Concomitant]
     Active Substance: PROPRANOLOL HYDROCHLORIDE
     Indication: Postural orthostatic tachycardia syndrome
     Dosage: 5 MG, UNK
     Route: 048
     Dates: start: 201905
  25. SODIUM BICARBONATE [Concomitant]
     Active Substance: SODIUM BICARBONATE
     Dosage: 40 ML, UNK
     Route: 061
     Dates: start: 20190415
  26. ONDANSETRON [Concomitant]
     Active Substance: ONDANSETRON
     Indication: Nausea
     Dosage: 8 MG, AS REQ^D
     Route: 048
     Dates: start: 20191106
  27. ONDANSETRON [Concomitant]
     Active Substance: ONDANSETRON
     Indication: Vomiting
  28. DOMPERIDONE [Concomitant]
     Active Substance: DOMPERIDONE
     Indication: Nausea
     Dosage: 10 MG, AS REQ^D
     Route: 048
     Dates: start: 20191106
  29. DOMPERIDONE [Concomitant]
     Active Substance: DOMPERIDONE
     Indication: Vomiting
  30. NIZATIDINE [Concomitant]
     Active Substance: NIZATIDINE
     Indication: Reflux gastritis
     Dosage: 300 MG, UNK
     Route: 048
     Dates: start: 20191113, end: 20191205
  31. NIZATIDINE [Concomitant]
     Active Substance: NIZATIDINE
     Dosage: 300 MG, UNK
     Route: 048
     Dates: start: 20191206, end: 20191221
  32. Amphotericin b w/Triamcinolone acetonide [Concomitant]
     Indication: Fungal infection
     Dosage: 400 MG, UNK
     Dates: start: 20191111
  33. SODIUM CHLORIDE [Concomitant]
     Active Substance: SODIUM CHLORIDE
     Indication: Tumour lysis syndrome
     Dosage: UNK
     Route: 042
     Dates: start: 20191105, end: 20191108

REACTIONS (3)
  - Streptococcal infection [Recovered/Resolved]
  - Pneumonia pseudomonal [Recovered/Resolved]
  - Febrile neutropenia [Recovered/Resolved]

NARRATIVE: CASE EVENT DATE: 20191127
